FAERS Safety Report 4394693-5 (Version None)
Quarter: 2004Q3

REPORT INFORMATION
  Report Type: 
  Country: None (occurrence: None)
  Receive Date: 20040707
  Receipt Date: 20040624
  Transmission Date: 20050211
  Serious: Yes (Other)
  Sender: FDA-Public Use
  Company Number: US-JNJFOC-20040607144

PATIENT
  Age: 81 Year
  Sex: Male

DRUGS (9)
  1. DURAGESIC [Suspect]
     Dosage: 75 UG/HR, 1 IN 72 HOUR, TRANSDERMAL
     Route: 062
     Dates: start: 20030321
  2. NORVASC [Concomitant]
  3. LIPITOR [Concomitant]
  4. ZOLOFT [Concomitant]
  5. REMERON [Concomitant]
  6. HYDROXIZINE (HYDROXYZINE) [Concomitant]
  7. ACTONEL [Concomitant]
  8. MIACALCIN [Concomitant]
  9. PLAVIX [Concomitant]

REACTIONS (2)
  - ANAPHYLACTIC REACTION [None]
  - DYSPNOEA [None]
